FAERS Safety Report 14459729 (Version 2)
Quarter: 2018Q2

REPORT INFORMATION
  Report Type: Spontaneous
  Country: US (occurrence: US)
  Receive Date: 20180130
  Receipt Date: 20180607
  Transmission Date: 20180711
  Serious: Yes (Hospitalization, Other)
  Sender: FDA-Public Use
  Company Number: US-ASTRAZENECA-2018SE09968

PATIENT
  Age: 20408 Day
  Sex: Female
  Weight: 54 kg

DRUGS (11)
  1. METHIMAZOLE. [Concomitant]
     Active Substance: METHIMAZOLE
     Indication: THYROID DISORDER
  2. PROTONIX [Concomitant]
     Active Substance: PANTOPRAZOLE SODIUM
     Indication: ADJUVANT THERAPY
  3. FENTANYL. [Concomitant]
     Active Substance: FENTANYL
     Indication: PAIN
     Dosage: 225 MG EVERY TWO DAYS
     Route: 061
  4. METHIMAZOLE. [Concomitant]
     Active Substance: METHIMAZOLE
     Indication: THYROID DISORDER
  5. XGEVA [Concomitant]
     Active Substance: DENOSUMAB
     Indication: BONE DISORDER
  6. TAGRISSO [Suspect]
     Active Substance: OSIMERTINIB
     Indication: NON-SMALL CELL LUNG CANCER METASTATIC
     Dosage: 80 MG EVERY OTHER DAY
     Route: 048
  7. MORPHINE [Concomitant]
     Active Substance: MORPHINE
     Indication: PAIN
     Dosage: AS REQUIRED
     Route: 048
  8. TAGRISSO [Suspect]
     Active Substance: OSIMERTINIB
     Indication: NON-SMALL CELL LUNG CANCER METASTATIC
     Route: 048
     Dates: start: 20171219
  9. FENTORA [Concomitant]
     Active Substance: FENTANYL CITRATE
     Indication: PAIN
     Dosage: 3200.0UG AS REQUIRED
     Route: 002
  10. MORPHINE MS CONTIN [Concomitant]
     Indication: PAIN
     Dosage: 60 MG, 2 TO 3 TIMES A DAY
     Route: 048
  11. ACTIQUE [Concomitant]
     Indication: PAIN
     Dosage: 3200.0UG AS REQUIRED
     Route: 048

REACTIONS (9)
  - Intestinal obstruction [Recovering/Resolving]
  - Headache [Recovered/Resolved]
  - Interstitial lung disease [Unknown]
  - Metastases to adrenals [Unknown]
  - Off label use [Unknown]
  - Pneumonia [Unknown]
  - Malignant neoplasm progression [Unknown]
  - Drug hypersensitivity [Unknown]
  - Product use issue [Unknown]

NARRATIVE: CASE EVENT DATE: 20171224
